FAERS Safety Report 11606342 (Version 1)
Quarter: 2015Q4

REPORT INFORMATION
  Report Type: Spontaneous
  Country: US (occurrence: US)
  Receive Date: 20151007
  Receipt Date: 20151007
  Transmission Date: 20160304
  Serious: No
  Sender: FDA-Public Use
  Company Number: US-GLAXOSMITHKLINE-US2015GSK123851

PATIENT
  Sex: Male

DRUGS (3)
  1. LAMICTAL XR [Suspect]
     Active Substance: LAMOTRIGINE
     Indication: PRODUCT USED FOR UNKNOWN INDICATION
     Dosage: UNK
  2. LAMICTAL XR [Suspect]
     Active Substance: LAMOTRIGINE
     Dosage: UNK
     Dates: end: 20150804
  3. LAMICTAL XR [Suspect]
     Active Substance: LAMOTRIGINE
     Dosage: UNK
     Dates: start: 20150804

REACTIONS (2)
  - Accidental overdose [Unknown]
  - Incorrect dosage administered [Unknown]
